FAERS Safety Report 7609734-9 (Version None)
Quarter: 2011Q3

REPORT INFORMATION
  Report Type: 
  Country: None (occurrence: None)
  Receive Date: 20110714
  Receipt Date: 20110701
  Transmission Date: 20111222
  Serious: Yes (Congenital Anomaly)
  Sender: FDA-Public Use
  Company Number: IN-MYLANLABS-2011S1013954

PATIENT
  Sex: Male

DRUGS (1)
  1. DICLOFENAC [Suspect]
     Indication: ARTHRALGIA
     Dosage: 100MG THRICE DAILY
     Route: 064

REACTIONS (4)
  - FAILURE TO THRIVE [None]
  - MULTIPLE CONGENITAL ABNORMALITIES [None]
  - MATERNAL EXPOSURE DURING PREGNANCY [None]
  - CONGENITAL CARDIOVASCULAR ANOMALY [None]
